FAERS Safety Report 7262390-4 (Version None)
Quarter: 2011Q1

REPORT INFORMATION
  Report Type: 
  Country: None (occurrence: None)
  Receive Date: 20110130
  Receipt Date: 20101117
  Transmission Date: 20110831
  Serious: No
  Sender: FDA-Public Use
  Company Number: US-ABBOTT-10P-163-0686105-00

PATIENT
  Sex: Female

DRUGS (3)
  1. HUMIRA [Suspect]
     Indication: CROHN'S DISEASE
     Dosage: 160 MG LOADING DOSE
     Route: 058
     Dates: start: 20101116, end: 20101116
  2. ENTOCORT EC [Concomitant]
     Indication: GASTROINTESTINAL INFLAMMATION
  3. HUMIRA [Suspect]

REACTIONS (3)
  - INJECTION SITE HAEMATOMA [None]
  - SWELLING FACE [None]
  - OEDEMA PERIPHERAL [None]
